FAERS Safety Report 4850736-3 (Version None)
Quarter: 2005Q4

REPORT INFORMATION
  Report Type: 
  Country: None (occurrence: None)
  Receive Date: 20051208
  Receipt Date: 20051123
  Transmission Date: 20060501
  Serious: Yes (Death, Life-Threatening, Hospitalization)
  Sender: FDA-Public Use
  Company Number: 2005-02192

PATIENT
  Age: 53 Year
  Sex: Male
  Weight: 76.6 kg

DRUGS (5)
  1. VELCADE [Suspect]
     Indication: MULTIPLE MYELOMA
     Dosage: 1.30 MG/M2, 2/WEEK
     Dates: start: 20030708, end: 20030807
  2. ANZEMET [Concomitant]
  3. DECADRON [Concomitant]
  4. PHYTONADIONE [Concomitant]
  5. ZOMETA [Concomitant]

REACTIONS (27)
  - ACTIVATED PARTIAL THROMBOPLASTIN TIME PROLONGED [None]
  - ANGIOPATHY [None]
  - CARDIAC TAMPONADE [None]
  - CARDIO-RESPIRATORY ARREST [None]
  - CARDIOMEGALY [None]
  - DEHYDRATION [None]
  - DYSPNOEA EXERTIONAL [None]
  - EFFUSION [None]
  - GASTROINTESTINAL HAEMORRHAGE [None]
  - HEADACHE [None]
  - HEPATIC FIBROSIS [None]
  - HEPATIC NECROSIS [None]
  - HYPERCOAGULATION [None]
  - INTERNATIONAL NORMALISED RATIO INCREASED [None]
  - LUNG INFILTRATION [None]
  - MACROPHAGES INCREASED [None]
  - METASTASES TO LIVER [None]
  - NAUSEA [None]
  - PANCYTOPENIA [None]
  - PERICARDIAL HAEMORRHAGE [None]
  - PETECHIAE [None]
  - PLASMACYTOMA [None]
  - PROTHROMBIN TIME PROLONGED [None]
  - PURPURA [None]
  - RENAL FAILURE [None]
  - SKIN LESION [None]
  - VOMITING [None]
